FAERS Safety Report 5443424-6 (Version None)
Quarter: 2007Q3

REPORT INFORMATION
  Report Type: 
  Country: None (occurrence: None)
  Receive Date: 20070905
  Receipt Date: 20070830
  Transmission Date: 20080115
  Serious: Yes (Other)
  Sender: FDA-Public Use
  Company Number: B0485210A

PATIENT
  Age: 37 Year
  Sex: Female

DRUGS (1)
  1. PAROXETINE [Suspect]
     Dosage: 30MG PER DAY
     Route: 065
     Dates: start: 20070101

REACTIONS (1)
  - ABORTION MISSED [None]
